FAERS Safety Report 6918282-0 (Version None)
Quarter: 2010Q3

REPORT INFORMATION
  Report Type: 
  Country: None (occurrence: None)
  Receive Date: 20100811
  Receipt Date: 20100730
  Transmission Date: 20110219
  Serious: Yes (Hospitalization)
  Sender: FDA-Public Use
  Company Number: US-BIOGENIDEC-2010BI009086

PATIENT
  Age: 56 Year
  Sex: Female
  Weight: 44 kg

DRUGS (52)
  1. TYSABRI [Suspect]
     Indication: MULTIPLE SCLEROSIS
     Route: 042
     Dates: start: 20090715
  2. CRANBERRY [Concomitant]
     Route: 048
     Dates: start: 20090518
  3. ALPRAZOLAM [Concomitant]
     Route: 048
     Dates: start: 20090518
  4. AMBIEN CR [Concomitant]
     Route: 048
     Dates: start: 20090629
  5. BACLOFEN [Concomitant]
     Route: 048
     Dates: start: 20091215
  6. BACLOFEN [Concomitant]
  7. BACLOFEN [Concomitant]
  8. BOTOX [Concomitant]
     Route: 058
     Dates: start: 20090602
  9. DANTROLENE [Concomitant]
     Route: 048
     Dates: start: 20100120
  10. DANTROLENE [Concomitant]
  11. ZYPREXA [Concomitant]
  12. ZYPREXA [Concomitant]
  13. DEPAKOTE ER [Concomitant]
     Route: 048
     Dates: start: 20091215
  14. DULCOLAX [Concomitant]
     Route: 048
     Dates: start: 20090518
  15. ERGOCALCIFEROL [Concomitant]
     Route: 048
     Dates: start: 20091215
  16. FOSAMAX [Concomitant]
     Route: 048
     Dates: start: 20090518
  17. FUROSEMIDE [Concomitant]
     Route: 048
     Dates: start: 20090518
  18. GEODON [Concomitant]
     Route: 048
     Dates: start: 20090518
  19. GEODON [Concomitant]
  20. GLYCOLAX [Concomitant]
     Route: 048
     Dates: start: 20090813
  21. LORTAB [Concomitant]
     Route: 048
     Dates: start: 20090518
  22. METOPROLOL [Concomitant]
     Route: 048
     Dates: start: 20090515
  23. METOPROLOL [Concomitant]
  24. POTASSIUM [Concomitant]
     Route: 048
     Dates: start: 20090518
  25. RECLAST [Concomitant]
     Route: 042
     Dates: start: 20090603
  26. REMIFEMIN [Concomitant]
     Route: 048
     Dates: start: 20090518
  27. TIZANIDINE HCL [Concomitant]
     Route: 048
     Dates: start: 20091118
  28. TIZANIDINE HCL [Concomitant]
  29. VESICARE [Concomitant]
     Route: 048
     Dates: start: 20100210
  30. VITAMIN D [Concomitant]
     Route: 048
     Dates: start: 20100210
  31. XOPENEX [Concomitant]
     Route: 055
     Dates: start: 20090518
  32. ZOLOFT [Concomitant]
     Route: 048
     Dates: start: 20090518
  33. ZOLOFT [Concomitant]
  34. VITAMIN B [Concomitant]
  35. BENADRYL [Concomitant]
  36. PROMETHAZINE [Concomitant]
  37. PROMETHAZINE [Concomitant]
  38. DIPHENOXYLATE [Concomitant]
  39. FERROUS SULFATE [Concomitant]
  40. MUCOMYST [Concomitant]
  41. ENABLEX [Concomitant]
  42. HYDROCODONE [Concomitant]
  43. ADVIL LIQUI-GELS [Concomitant]
  44. ALEVE (CAPLET) [Concomitant]
  45. CLONIDINE [Concomitant]
  46. LYRICA [Concomitant]
  47. ACETAMINOPHEN [Concomitant]
  48. VITAMIN TAB [Concomitant]
  49. NYSTATIN [Concomitant]
  50. CALCIUM [Concomitant]
  51. IRON [Concomitant]
  52. ASCORBIC ACID [Concomitant]

REACTIONS (3)
  - MENTAL STATUS CHANGES [None]
  - RESPIRATORY FAILURE [None]
  - URINARY TRACT INFECTION [None]
